FAERS Safety Report 5912072-3 (Version None)
Quarter: 2008Q4

REPORT INFORMATION
  Report Type: 
  Country: None (occurrence: None)
  Receive Date: 20081006
  Receipt Date: 20080929
  Transmission Date: 20090506
  Serious: Yes (Other)
  Sender: FDA-Public Use
  Company Number: 2008JP004072

PATIENT
  Age: 53 Year
  Sex: Female
  Weight: 51 kg

DRUGS (4)
  1. PROGRAF [Suspect]
     Indication: HEART TRANSPLANT
     Dosage: ORAL
     Route: 048
  2. MYCOPHENOLATE MOFETIL [Concomitant]
  3. PREDNISONE [Concomitant]
  4. GANCICLOVIR [Concomitant]

REACTIONS (3)
  - CYTOMEGALOVIRUS ANTIGEN POSITIVE [None]
  - ENDOMETRIAL CANCER [None]
  - HEPATIC FUNCTION ABNORMAL [None]
